FAERS Safety Report 21523029 (Version 2)
Quarter: 2024Q4

REPORT INFORMATION
  Report Type: Spontaneous
  Country: CA (occurrence: CA)
  Receive Date: 20221029
  Receipt Date: 20241126
  Transmission Date: 20250115
  Serious: Yes (Hospitalization, Other)
  Sender: ACCORD
  Company Number: None

PATIENT
  Age: 57 Year
  Sex: Male

DRUGS (7)
  1. MYCOPHENOLATE MOFETIL [Suspect]
     Active Substance: MYCOPHENOLATE MOFETIL
     Indication: Antinuclear antibody
     Dosage: 2 EVERY 1 DAYS
     Route: 048
  2. RITUXIMAB [Suspect]
     Active Substance: RITUXIMAB
     Indication: Rheumatoid arthritis
     Route: 065
  3. DIFLUPREDNATE [Suspect]
     Active Substance: DIFLUPREDNATE
     Indication: Uveitis
  4. PREDNISONE [Suspect]
     Active Substance: PREDNISONE
     Indication: Morvan syndrome
     Dosage: 1 EVERY 1 DAYS
     Route: 048
  5. IMMUNOGLOBULINS [Concomitant]
     Indication: Morvan syndrome
     Route: 042
  6. TIMOLOL [Concomitant]
     Active Substance: TIMOLOL\TIMOLOL MALEATE
     Indication: Product used for unknown indication
  7. PREDNISONE [Suspect]
     Active Substance: PREDNISONE
     Indication: Morvan syndrome
     Dosage: 1 EVERY 1 DAYS
     Route: 048

REACTIONS (5)
  - Haemophilus test positive [Unknown]
  - Pneumonia [Unknown]
  - Pneumonia haemophilus [Recovering/Resolving]
  - Rebound effect [Recovering/Resolving]
  - Uveitis [Recovering/Resolving]
